FAERS Safety Report 15335734 (Version 2)
Quarter: 2019Q1

REPORT INFORMATION
  Report Type: Spontaneous
  Country: US (occurrence: US)
  Receive Date: 20180830
  Receipt Date: 20190104
  Transmission Date: 20190417
  Serious: Yes (Death)
  Sender: FDA-Public Use
  Company Number: US-CELGENEUS-USA-20180809087

PATIENT
  Age: 76 Year
  Sex: Male
  Weight: 57.4 kg

DRUGS (2)
  1. AZACITIDINE. [Suspect]
     Active Substance: AZACITIDINE
     Indication: PRODUCT USED FOR UNKNOWN INDICATION
     Route: 041
     Dates: start: 20180811, end: 20180823
  2. ENTINOSTAT [Concomitant]
     Active Substance: ENTINOSTAT
     Indication: PRODUCT USED FOR UNKNOWN INDICATION
     Route: 065
     Dates: start: 20180811, end: 20180823

REACTIONS (1)
  - Death [Fatal]

NARRATIVE: CASE EVENT DATE: 20180826
